FAERS Safety Report 21215185 (Version 2)
Quarter: 2022Q3

REPORT INFORMATION
  Report Type: Spontaneous
  Country: US (occurrence: US)
  Receive Date: 20220816
  Receipt Date: 20220825
  Transmission Date: 20221027
  Serious: Yes (Other)
  Sender: FDA-Public Use
  Company Number: US-PFIZER INC-2020306323

PATIENT
  Age: 75 Year
  Sex: Female
  Weight: 77.11 kg

DRUGS (6)
  1. PREMARIN [Suspect]
     Active Substance: ESTROGENS, CONJUGATED
     Indication: Atrophy
     Dosage: UNK
  2. EVISTA [Concomitant]
     Active Substance: RALOXIFENE HYDROCHLORIDE
     Dosage: UNK
  3. RALOXIFENE [Concomitant]
     Active Substance: RALOXIFENE
     Indication: Bone disorder
     Dosage: 60 MG, 1X/DAY
     Route: 048
  4. TELMISARTAN [Concomitant]
     Active Substance: TELMISARTAN
     Indication: Blood pressure abnormal
     Dosage: 40 MG
  5. TOLTERODINE [Concomitant]
     Active Substance: TOLTERODINE
     Dosage: 4 MG
  6. SYNTHROID [Concomitant]
     Active Substance: LEVOTHYROXINE SODIUM
     Dosage: UNK

REACTIONS (4)
  - Cataract [Unknown]
  - Pain [Unknown]
  - Weight decreased [Unknown]
  - Expired product administered [Unknown]
